FAERS Safety Report 8361321-3 (Version None)
Quarter: 2012Q2

REPORT INFORMATION
  Report Type: 
  Country: None (occurrence: None)
  Receive Date: 20120515
  Receipt Date: 20120511
  Transmission Date: 20120825
  Serious: Yes (Hospitalization, Disabling, Other)
  Sender: FDA-Public Use
  Company Number: US-MERCK-1202USA01658

PATIENT
  Age: 68 Year
  Sex: Female
  Weight: 64 kg

DRUGS (8)
  1. ALENDRONATE SODIUM [Suspect]
     Route: 048
     Dates: start: 20080101, end: 20091001
  2. MULTI-VITAMINS [Concomitant]
     Route: 065
     Dates: start: 19690101
  3. CHOLECALCIFEROL [Concomitant]
     Route: 065
     Dates: start: 19690101
  4. FOSAMAX [Suspect]
     Indication: OSTEOPOROSIS
     Route: 048
     Dates: start: 19970101, end: 20080201
  5. OMEGA-3 MARINE TRIGLYCERIDES [Concomitant]
     Route: 065
     Dates: start: 19690101
  6. CALCIUM (UNSPECIFIED) [Concomitant]
     Route: 048
     Dates: start: 19690101
  7. RECLAST [Suspect]
     Indication: OSTEOPOROSIS
     Route: 051
     Dates: start: 20091101
  8. ALENDRONATE SODIUM [Suspect]
     Indication: OSTEOPOROSIS
     Route: 048
     Dates: start: 20080201, end: 20090101

REACTIONS (40)
  - DEVICE FAILURE [None]
  - INTERVERTEBRAL DISC DEGENERATION [None]
  - TREATMENT FAILURE [None]
  - ROAD TRAFFIC ACCIDENT [None]
  - CORONARY ARTERY DISEASE [None]
  - FALL [None]
  - LYMPHOEDEMA [None]
  - TENDONITIS [None]
  - HYPERLIPIDAEMIA [None]
  - HAEMORRHAGIC ANAEMIA [None]
  - WRIST FRACTURE [None]
  - HYPERTROPHY [None]
  - HYPERCHOLESTEROLAEMIA [None]
  - FEMUR FRACTURE [None]
  - COMPRESSION FRACTURE [None]
  - DEEP VEIN THROMBOSIS [None]
  - SPINAL CORD COMPRESSION [None]
  - CATARACT [None]
  - CLAUSTROPHOBIA [None]
  - BURSITIS [None]
  - SPINAL OSTEOARTHRITIS [None]
  - MYOFASCIAL PAIN SYNDROME [None]
  - LUMBAR SPINAL STENOSIS [None]
  - BALANCE DISORDER [None]
  - CELLULITIS [None]
  - PROCEDURAL HYPERTENSION [None]
  - LOW TURNOVER OSTEOPATHY [None]
  - HAND FRACTURE [None]
  - SENSORY DISTURBANCE [None]
  - PAIN IN EXTREMITY [None]
  - GRAFT DYSFUNCTION [None]
  - RIB FRACTURE [None]
  - BENIGN BREAST NEOPLASM [None]
  - VERTEBRAL FORAMINAL STENOSIS [None]
  - TOOTH DISORDER [None]
  - SCOLIOSIS [None]
  - RADICULITIS LUMBOSACRAL [None]
  - OSTEOARTHRITIS [None]
  - MERALGIA PARAESTHETICA [None]
  - HYPERTENSION [None]
